FAERS Safety Report 5743036-0 (Version None)
Quarter: 2008Q2

REPORT INFORMATION
  Report Type: 
  Country: None (occurrence: None)
  Receive Date: 20080519
  Receipt Date: 20080509
  Transmission Date: 20081010
  Serious: Yes (Death)
  Sender: FDA-Public Use
  Company Number: KR-ROCHE-559793

PATIENT
  Sex: Male
  Weight: 64 kg

DRUGS (3)
  1. XELODA [Suspect]
     Route: 048
     Dates: start: 20071031, end: 20080417
  2. ERLOTINIB [Suspect]
     Route: 048
     Dates: start: 20071031, end: 20080417
  3. GEMCITABINE [Suspect]
     Dosage: DOSAGE FORM; INFUSION, FREQUENCY: QDAY 1, 8,15.
     Route: 042
     Dates: start: 20071031, end: 20080417

REACTIONS (1)
  - CEREBRAL INFARCTION [None]
